FAERS Safety Report 4484257-7 (Version None)
Quarter: 2004Q4

REPORT INFORMATION
  Report Type: 
  Country: None (occurrence: None)
  Receive Date: 20041025
  Receipt Date: 20041018
  Transmission Date: 20050328
  Serious: Yes (Other)
  Sender: FDA-Public Use
  Company Number: GB-GLAXOSMITHKLINE-B0348664A

PATIENT
  Sex: Female

DRUGS (2)
  1. FLIXOTIDE [Suspect]
     Indication: ASTHMA
     Route: 055
     Dates: end: 20040801
  2. SALBUTAMOL [Concomitant]
     Indication: ASTHMA
     Route: 055

REACTIONS (2)
  - RETINOPATHY [None]
  - VISUAL DISTURBANCE [None]
